FAERS Safety Report 10456530 (Version 1)
Quarter: 2014Q3

REPORT INFORMATION
  Report Type: Spontaneous
  Country: US (occurrence: None)
  Receive Date: 20140828
  Receipt Date: 20140828
  Transmission Date: 20150326
  Serious: Yes (Other)
  Sender: FDA-Public Use
  Company Number: PHEH2014US010218

PATIENT
  Age: 42 Year
  Sex: Male

DRUGS (1)
  1. SANDOSTATIN [Suspect]
     Active Substance: OCTREOTIDE ACETATE
     Dosage: UNK

REACTIONS (5)
  - Nausea [None]
  - Abdominal pain [None]
  - Gait disturbance [None]
  - Pancreatitis acute [None]
  - Hepatic enzyme increased [None]

NARRATIVE: CASE EVENT DATE: 201403
